FAERS Safety Report 7669676-X (Version None)
Quarter: 2011Q3

REPORT INFORMATION
  Report Type: 
  Country: None (occurrence: None)
  Receive Date: 20110808
  Receipt Date: 20110808
  Transmission Date: 20111222
  Serious: Yes (Other)
  Sender: FDA-Public Use
  Company Number: DE-ABBOTT-11P-062-0699408-00

PATIENT
  Sex: Female
  Weight: 72 kg

DRUGS (1)
  1. HUMIRA [Suspect]
     Indication: PSORIASIS
     Route: 058
     Dates: start: 20101023, end: 20101220

REACTIONS (12)
  - PSORIASIS [None]
  - DERMATITIS EXFOLIATIVE [None]
  - INSOMNIA [None]
  - PAIN [None]
  - RASH PUSTULAR [None]
  - ALOPECIA [None]
  - ONYCHOMADESIS [None]
  - ABASIA [None]
  - BLISTER [None]
  - PRURITUS [None]
  - PURULENT DISCHARGE [None]
  - SCAB [None]
